FAERS Safety Report 25139778 (Version 5)
Quarter: 2025Q2

REPORT INFORMATION
  Report Type: Spontaneous
  Country: US (occurrence: US)
  Receive Date: 20250331
  Receipt Date: 20250617
  Transmission Date: 20250717
  Serious: Yes (Other)
  Sender: ZEALAND PHARMACEUTICALS
  Company Number: US-ZPPROD-ZP25US001009

PATIENT

DRUGS (1)
  1. ZEGALOGUE [Suspect]
     Active Substance: DASIGLUCAGON
     Indication: Hypoglycaemia
     Route: 058
     Dates: start: 20250314, end: 20250314

REACTIONS (2)
  - Product administration error [Not Recovered/Not Resolved]
  - Hypoglycaemic unconsciousness [Unknown]

NARRATIVE: CASE EVENT DATE: 20250314
